FAERS Safety Report 13687216 (Version 2)
Quarter: 2017Q3

REPORT INFORMATION
  Report Type: Report from Study
  Country: US (occurrence: US)
  Receive Date: 20170623
  Receipt Date: 20170907
  Transmission Date: 20171127
  Serious: Yes (Hospitalization, Other)
  Sender: FDA-Public Use
  Company Number: US-JAZZ-2017-US-008159

PATIENT
  Age: 61 Year
  Sex: Female

DRUGS (16)
  1. MELATONIN [Concomitant]
     Active Substance: MELATONIN
  2. SCOPOLAMINE                        /00008701/ [Concomitant]
     Active Substance: SCOPOLAMINE
  3. SIMVASTATIN. [Concomitant]
     Active Substance: SIMVASTATIN
  4. CLOZAPINE ODT [Suspect]
     Active Substance: CLOZAPINE
     Indication: SCHIZOAFFECTIVE DISORDER
     Dosage: 75 MG, QD
     Route: 048
  5. ALBUTEROL W/IPRATROPIUM [Concomitant]
     Active Substance: ALBUTEROL\IPRATROPIUM
  6. CHOLECALCIFEROL [Concomitant]
     Active Substance: CHOLECALCIFEROL
  7. RIVASTIGMINE. [Concomitant]
     Active Substance: RIVASTIGMINE
  8. PREMARIN [Concomitant]
     Active Substance: ESTROGENS, CONJUGATED
  9. CLOPIDOGREL [Concomitant]
     Active Substance: CLOPIDOGREL BISULFATE
  10. LACTULOSE. [Concomitant]
     Active Substance: LACTULOSE
  11. BUDESONIDE W/FORMOTEROL [Concomitant]
     Active Substance: BUDESONIDE\FORMOTEROL
  12. ONDANSETRON [Concomitant]
     Active Substance: ONDANSETRON
  13. LORAZEPAM. [Concomitant]
     Active Substance: LORAZEPAM
  14. LOXAPINE. [Concomitant]
     Active Substance: LOXAPINE
  15. VALPROIC ACID. [Concomitant]
     Active Substance: VALPROIC ACID
  16. FLUTICASONE. [Concomitant]
     Active Substance: FLUTICASONE

REACTIONS (1)
  - Bacteraemia [Recovered/Resolved]

NARRATIVE: CASE EVENT DATE: 20170603
